FAERS Safety Report 7630869-9 (Version None)
Quarter: 2011Q3

REPORT INFORMATION
  Report Type: 
  Country: None (occurrence: None)
  Receive Date: 20110724
  Receipt Date: 20110714
  Transmission Date: 20111222
  Serious: Yes (Hospitalization)
  Sender: FDA-Public Use
  Company Number: US-AMGEN-USASP2011009013

PATIENT
  Age: 51 Year
  Sex: Female

DRUGS (2)
  1. ENBREL [Suspect]
     Dosage: 25 MG, QWK
     Dates: start: 19981201
  2. ENBREL [Suspect]
     Indication: RHEUMATOID ARTHRITIS
     Dosage: 25 MG, 2 TIMES/WK
     Dates: start: 19981201

REACTIONS (5)
  - RHEUMATOID ARTHRITIS [None]
  - VULVOVAGINAL MYCOTIC INFECTION [None]
  - OVARIAN CYST [None]
  - BRONCHITIS [None]
  - ORAL FUNGAL INFECTION [None]
